FAERS Safety Report 8384559-8 (Version None)
Quarter: 2012Q2

REPORT INFORMATION
  Report Type: 
  Country: None (occurrence: None)
  Receive Date: 20120524
  Receipt Date: 20120503
  Transmission Date: 20120825
  Serious: Yes (Other)
  Sender: FDA-Public Use
  Company Number: GB-PFIZER INC-2012112084

PATIENT
  Sex: Female

DRUGS (1)
  1. EPIPEN [Suspect]
     Indication: ACCIDENTAL EXPOSURE

REACTIONS (3)
  - HYPOAESTHESIA [None]
  - INJURY ASSOCIATED WITH DEVICE [None]
  - INJECTION SITE HAEMATOMA [None]
